FAERS Safety Report 5745006-5 (Version None)
Quarter: 2008Q2

REPORT INFORMATION
  Report Type: 
  Country: None (occurrence: None)
  Receive Date: 20080521
  Receipt Date: 20080516
  Transmission Date: 20081010
  Serious: Yes (Other)
  Sender: FDA-Public Use
  Company Number: US-ASTRAZENECA-2008UW10165

PATIENT
  Age: 88 Year
  Sex: Female
  Weight: 59 kg

DRUGS (8)
  1. ARIMIDEX [Suspect]
     Indication: BREAST CANCER
     Dosage: 1 MG
     Route: 048
     Dates: start: 20030101
  2. AMIODARONE HCL [Concomitant]
  3. LASIX [Concomitant]
  4. INSPRA [Concomitant]
  5. LEPROL [Concomitant]
  6. COUMADIN [Concomitant]
  7. MAGNESIUM OXIDE [Concomitant]
  8. PROTONIX [Concomitant]

REACTIONS (3)
  - ARTHRALGIA [None]
  - FALL [None]
  - MUSCULAR WEAKNESS [None]
